FAERS Safety Report 14755448 (Version 1)
Quarter: 2018Q2

REPORT INFORMATION
  Report Type: Other
  Country: MX (occurrence: US)
  Receive Date: 20180413
  Receipt Date: 20180413
  Transmission Date: 20180711
  Serious: Yes (Hospitalization)
  Sender: FDA-Public Use
  Company Number: US-ATLAS PHARMACEUTICALS, LLC-2045700

PATIENT
  Age: 28 Year
  Sex: Male

DRUGS (5)
  1. ABACAVIR. [Suspect]
     Active Substance: ABACAVIR
     Route: 065
  2. TENOFOVIR DISOPROXIL FUMARATE. [Suspect]
     Active Substance: TENOFOVIR DISOPROXIL FUMARATE
     Route: 065
  3. NPH INSULIN [Concomitant]
     Active Substance: INSULIN BEEF
     Route: 065
  4. METFORMIN [Suspect]
     Active Substance: METFORMIN HYDROCHLORIDE
     Indication: TYPE 2 DIABETES MELLITUS
     Route: 065
  5. LOPINAVIR/RITONAVIR [Suspect]
     Active Substance: LOPINAVIR\RITONAVIR
     Route: 065

REACTIONS (2)
  - Lactic acidosis [Recovering/Resolving]
  - Drug interaction [Recovering/Resolving]
